FAERS Safety Report 9346879 (Version 2)
Quarter: 2013Q4

REPORT INFORMATION
  Report Type: Spontaneous
  Country: US (occurrence: US)
  Receive Date: 20130613
  Receipt Date: 20131108
  Transmission Date: 20140711
  Serious: Yes (Hospitalization)
  Sender: FDA-Public Use
  Company Number: US-B.I. PHARMACEUTICALS,INC./RIDGEFIELD-2013-BI-16404BP

PATIENT
  Age: 71 Year
  Sex: Female
  Weight: 52.16 kg

DRUGS (7)
  1. PRADAXA [Suspect]
     Indication: ATRIAL FIBRILLATION
     Dates: start: 20120228, end: 20120301
  2. BUMEX [Concomitant]
     Route: 048
  3. CORDARONE [Concomitant]
     Dosage: 200 MG
     Route: 048
  4. COZAAR [Concomitant]
     Dosage: 100 MG
     Route: 048
  5. ZOCOR [Concomitant]
     Dosage: 20 MG
     Route: 048
  6. SYNTHROID [Concomitant]
     Dosage: 150 MCG
     Route: 048
  7. ZYLOPRIM [Concomitant]
     Dosage: 75 MG
     Route: 048

REACTIONS (2)
  - Gastrointestinal haemorrhage [Recovered/Resolved]
  - Haemorrhagic anaemia [Unknown]
